FAERS Safety Report 8902045 (Version 4)
Quarter: 2014Q1

REPORT INFORMATION
  Report Type: Report from Study
  Country: JP (occurrence: JP)
  Receive Date: 20121112
  Receipt Date: 20140117
  Transmission Date: 20141002
  Serious: Yes (Hospitalization)
  Sender: FDA-Public Use
  Company Number: JP-VERTEX PHARMACEUTICAL INC.-2012-024325

PATIENT
  Age: 53 Year
  Sex: Female

DRUGS (27)
  1. VX-950 (TELAPREVIR) [Suspect]
     Indication: CHRONIC HEPATITIS C
     Dosage: 1500 MG, QD
     Route: 048
     Dates: start: 20120726, end: 20120919
  2. VX-950 (TELAPREVIR) [Suspect]
     Dosage: 1000 MG, QD
     Route: 048
     Dates: start: 20120920, end: 20120926
  3. REBETOL [Suspect]
     Indication: CHRONIC HEPATITIS C
     Dosage: 400 MG, QD
     Route: 048
     Dates: start: 20120726, end: 20120830
  4. REBETOL [Suspect]
     Dosage: 200 MG, QD
     Route: 048
     Dates: start: 20120831, end: 20120920
  5. REBETOL [Suspect]
     Dosage: 200 MG, QD
     Route: 048
     Dates: start: 20121018, end: 20121107
  6. REBETOL [Suspect]
     Dosage: 400 MG, QD
     Route: 048
     Dates: start: 20121108
  7. PEGINTRON [Suspect]
     Indication: CHRONIC HEPATITIS C
     Dosage: 1.78 ?G/KG, QW
     Route: 058
     Dates: start: 20120726, end: 20120920
  8. PEGINTRON [Suspect]
     Dosage: 1.74 ?G/KG, QW
     Route: 058
     Dates: start: 20120927
  9. PEGINTRON [Suspect]
     Dosage: 1.739 ?G/KG, QW
     Route: 058
  10. ZYLORIC [Suspect]
     Indication: ADVERSE EVENT
     Dosage: 100 MG, QD
     Route: 048
     Dates: start: 20120728, end: 20120926
  11. METHYCOBAL [Concomitant]
     Dosage: 1 AMP, QD
     Route: 030
     Dates: start: 20120726, end: 20120726
  12. LOXONIN [Concomitant]
     Dosage: 3 DF, QD
     Route: 048
     Dates: start: 20120727, end: 20120816
  13. MUCOSTA [Concomitant]
     Dosage: 3 DF, QD
     Route: 048
     Dates: start: 20120727, end: 20120816
  14. MUCOSTA [Concomitant]
     Dosage: 3 DF, QD
     Route: 048
     Dates: start: 20120816
  15. MUCOSTA [Concomitant]
     Dosage: 300 MG, QD
     Route: 048
  16. VEEN-F [Concomitant]
     Dosage: 1 BOTTLE/DAY
     Route: 042
     Dates: start: 20120816, end: 20120816
  17. VEEN-F [Concomitant]
     Dosage: 1 BOTTLE/DAY
     Route: 042
     Dates: start: 20120823, end: 20120827
  18. VITAMEDIN [Concomitant]
     Dosage: 1 VIAL, QD
     Route: 042
     Dates: start: 20120816, end: 20120816
  19. VITAMEDIN [Concomitant]
     Dosage: 1 VIAL, QD
     Route: 042
     Dates: start: 20120823, end: 20120827
  20. ASCORBIC ACID [Concomitant]
     Dosage: 1 AMP, QD
     Route: 042
     Dates: start: 20120816, end: 20120816
  21. ASCORBIC ACID [Concomitant]
     Dosage: 1 AMP, QD
     Route: 042
     Dates: start: 20120823, end: 20120827
  22. NAIXAN [Concomitant]
     Dosage: 300 MG, QD
     Route: 048
     Dates: start: 20120816
  23. MEIACT [Concomitant]
     Dosage: 300 MG, QD
     Route: 048
     Dates: start: 20121108, end: 20121113
  24. AZUNOL [Concomitant]
     Dosage: QID, GARGLE
     Route: 049
     Dates: start: 20121129, end: 20130104
  25. PROMAC [Concomitant]
     Dosage: 75 MG, QD
     Route: 048
     Dates: start: 20120913
  26. TAKEPRON [Concomitant]
     Dosage: 15 MG, QD
     Route: 048
     Dates: start: 20120816, end: 20120912
  27. TAKEPRON [Concomitant]
     Dosage: 30 MG, QD
     Route: 048
     Dates: start: 20120913

REACTIONS (3)
  - Stomatitis [Recovered/Resolved]
  - Decreased appetite [Recovered/Resolved]
  - Haemoglobin decreased [Recovered/Resolved]
